FAERS Safety Report 21860736 (Version 5)
Quarter: 2024Q1

REPORT INFORMATION
  Report Type: Report from Study
  Country: US (occurrence: US)
  Receive Date: 20230113
  Receipt Date: 20240319
  Transmission Date: 20240409
  Serious: Yes (Hospitalization, Other)
  Sender: FDA-Public Use
  Company Number: US-HBP-2023US028196

PATIENT
  Age: 89 Year
  Sex: Male

DRUGS (7)
  1. VALCHLOR [Suspect]
     Active Substance: MECHLORETHAMINE
     Indication: Cutaneous T-cell lymphoma
     Dosage: THIN FILM, QD
     Route: 061
     Dates: start: 20170204
  2. VALCHLOR [Suspect]
     Active Substance: MECHLORETHAMINE
     Dosage: THIN FILM, QD ON OTHER AREAS EXCEPT HAND
     Route: 061
  3. VALCHLOR [Suspect]
     Active Substance: MECHLORETHAMINE
     Dosage: THIN FILM, QD ON OTHER AREAS EXCEPT HAND
     Route: 061
     Dates: start: 20240208, end: 20240211
  4. DIFLUCAN [Suspect]
     Active Substance: FLUCONAZOLE
     Dosage: UNK, UNKNOWN
     Route: 065
     Dates: start: 20240208
  5. TRIAMCINOLONE ACETONIDE [Concomitant]
     Active Substance: TRIAMCINOLONE ACETONIDE
     Dosage: UNK, UNKNOWN
     Dates: start: 20230104
  6. CARBIDOPA LEVODOPA [Concomitant]
     Active Substance: CARBIDOPA\LEVODOPA
     Dosage: UNK, UNKNOWN
  7. BAVENCIO [Concomitant]
     Active Substance: AVELUMAB
     Dosage: UNK, UNKNOWN

REACTIONS (15)
  - Skin weeping [Not Recovered/Not Resolved]
  - Skin exfoliation [Unknown]
  - Squamous cell carcinoma of skin [Not Recovered/Not Resolved]
  - Cellulitis [Unknown]
  - Cardiac failure congestive [Unknown]
  - Fluid retention [Not Recovered/Not Resolved]
  - Peripheral swelling [Recovering/Resolving]
  - Condition aggravated [Recovering/Resolving]
  - Parkinson^s disease [Unknown]
  - Cutaneous T-cell lymphoma [Unknown]
  - Skin lesion [Unknown]
  - Eyelid exfoliation [Unknown]
  - Drug hypersensitivity [Unknown]
  - Application site erythema [Recovered/Resolved]
  - Fungal infection [Unknown]

NARRATIVE: CASE EVENT DATE: 20240201
